FAERS Safety Report 21274812 (Version 1)
Quarter: 2022Q3

REPORT INFORMATION
  Report Type: Spontaneous
  Country: US (occurrence: US)
  Receive Date: 20220831
  Receipt Date: 20220831
  Transmission Date: 20221027
  Serious: No
  Sender: FDA-Public Use
  Company Number: US-AMERICAN REGENT INC-2021003036

PATIENT
  Age: 24 Year
  Sex: Female

DRUGS (1)
  1. FERRIC CARBOXYMALTOSE [Suspect]
     Active Substance: FERRIC CARBOXYMALTOSE
     Indication: Product used for unknown indication
     Dosage: FIRST DOSE OF INJECTAFER MIXED IN 250 ML BAG OF SALINE; RECEIVED ABOUT 200 CC OF THE 250 CC INFUSION
     Route: 042
     Dates: start: 20211111, end: 20211111

REACTIONS (2)
  - Anxiety [Unknown]
  - Chest discomfort [Unknown]

NARRATIVE: CASE EVENT DATE: 20211111
